FAERS Safety Report 6391694-2 (Version None)
Quarter: 2009Q4

REPORT INFORMATION
  Report Type: 
  Country: None (occurrence: None)
  Receive Date: 20091007
  Receipt Date: 20090811
  Transmission Date: 20100525
  Serious: No
  Sender: FDA-Public Use
  Company Number: US-BAYER-200919121NA

PATIENT
  Sex: Female

DRUGS (1)
  1. YAZ [Suspect]
     Indication: ACNE
     Route: 048
     Dates: start: 20090101

REACTIONS (4)
  - FLUID RETENTION [None]
  - GASTROENTERITIS VIRAL [None]
  - INCREASED APPETITE [None]
  - VOMITING [None]
